FAERS Safety Report 11127954 (Version 1)
Quarter: 2015Q2

REPORT INFORMATION
  Report Type: Spontaneous
  Country: US (occurrence: None)
  Receive Date: 20150520
  Receipt Date: 20150520
  Transmission Date: 20150821
  Serious: Yes (Hospitalization)
  Sender: FDA-Public Use
  Company Number: None

PATIENT
  Age: 57 Year
  Sex: Male
  Weight: 99.34 kg

DRUGS (19)
  1. MULTIVITAMIN TABLET [Concomitant]
  2. LACTULOS STARTED [Concomitant]
  3. CHOLECALCIFEROL [Concomitant]
     Active Substance: CHOLECALCIFEROL
  4. SULFAMETHOXAZOLE/TRIMETHOPRIM [Concomitant]
     Active Substance: SULFAMETHOXAZOLE\TRIMETHOPRIM
  5. SPIRONOLACTONE. [Concomitant]
     Active Substance: SPIRONOLACTONE
  6. MYCOPHENOLATE MOFETIL. [Suspect]
     Active Substance: MYCOPHENOLATE MOFETIL
     Indication: HEPATITIS ALCOHOLIC
     Dosage: 40MG DAILY
     Dates: start: 20150403, end: 20150414
  7. FUROSEMIDE. [Concomitant]
     Active Substance: FUROSEMIDE
  8. LEVOFLOLAXIN [Concomitant]
  9. SIMETHICONE [Concomitant]
     Active Substance: DIMETHICONE\SILICON DIOXIDE\SIMETHICONE
  10. GLIMPIRIDE [Concomitant]
  11. DICLOFENAC [Concomitant]
     Active Substance: DICLOFENAC
  12. ALOE VESTA OINTMENT [Concomitant]
  13. PANTOPRZOLE [Concomitant]
  14. SILDENAFIL CITRATE. [Concomitant]
     Active Substance: SILDENAFIL CITRATE
  15. GABAPENTIN. [Concomitant]
     Active Substance: GABAPENTIN
  16. STOMAHESIVE POWDER [Concomitant]
  17. METFORMIN [Concomitant]
     Active Substance: METFORMIN HYDROCHLORIDE
  18. TRAZODONE [Concomitant]
     Active Substance: TRAZODONE HYDROCHLORIDE
  19. BACLOFEN. [Concomitant]
     Active Substance: BACLOFEN

REACTIONS (6)
  - Haematuria [None]
  - Urinary tract infection [None]
  - White blood cell count increased [None]
  - Portal vein thrombosis [None]
  - Mental status changes [None]
  - Cholelithiasis [None]

NARRATIVE: CASE EVENT DATE: 20150414
